FAERS Safety Report 7023508-1 (Version None)
Quarter: 2010Q3

REPORT INFORMATION
  Report Type: 
  Country: None (occurrence: None)
  Receive Date: 20100929
  Receipt Date: 20100929
  Transmission Date: 20110219
  Serious: Yes (Life-Threatening, Hospitalization)
  Sender: FDA-Public Use
  Company Number: None

PATIENT
  Age: 33 Year
  Sex: Female
  Weight: 81.6475 kg

DRUGS (1)
  1. NUVARING [Suspect]
     Dosage: 1 EVERY 3 WEEKS VAG
     Route: 067

REACTIONS (1)
  - DEEP VEIN THROMBOSIS [None]
